FAERS Safety Report 22182658 (Version 1)
Quarter: 2023Q2

REPORT INFORMATION
  Report Type: Spontaneous
  Country: PT (occurrence: None)
  Receive Date: 20230406
  Receipt Date: 20230406
  Transmission Date: 20230721
  Serious: Yes (Hospitalization)
  Sender: FDA-Public Use
  Company Number: 2023A073578

PATIENT
  Age: 41 Year
  Sex: Female

DRUGS (14)
  1. SAPHNELO [Suspect]
     Active Substance: ANIFROLUMAB-FNIA
     Indication: Systemic lupus erythematosus
     Route: 042
     Dates: start: 20230215
  2. VENLAFAXINE HYDROCHLORIDE [Concomitant]
     Active Substance: VENLAFAXINE HYDROCHLORIDE
  3. LEVETIRACETAM [Concomitant]
     Active Substance: LEVETIRACETAM
  4. PLAQUINOL [Concomitant]
     Active Substance: HYDROXYCHLOROQUINE SULFATE
  5. IMURAN [Concomitant]
     Active Substance: AZATHIOPRINE
  6. NORVASC [Concomitant]
     Active Substance: AMLODIPINE BESYLATE
  7. TRENTAL [Concomitant]
     Active Substance: PENTOXIFYLLINE
  8. PREDNISOLONE [Concomitant]
     Active Substance: PREDNISOLONE
     Route: 048
  9. ASPIRIN [Concomitant]
     Active Substance: ASPIRIN
  10. TRAZODONE HYDROCHLORIDE [Concomitant]
     Active Substance: TRAZODONE HYDROCHLORIDE
     Route: 048
  11. ESOMEPRAZOLE [Concomitant]
     Active Substance: ESOMEPRAZOLE
  12. SINTROM [Concomitant]
     Active Substance: ACENOCOUMAROL
  13. LYRICA [Concomitant]
     Active Substance: PREGABALIN
  14. BUDESONIDE [Concomitant]
     Active Substance: BUDESONIDE
     Route: 048

REACTIONS (4)
  - Skin reaction [Recovered/Resolved]
  - Herpes zoster [Recovered/Resolved]
  - Oesophageal candidiasis [Recovering/Resolving]
  - Oropharyngeal candidiasis [Recovering/Resolving]

NARRATIVE: CASE EVENT DATE: 20230219
